FAERS Safety Report 11521157 (Version 2)
Quarter: 2015Q4

REPORT INFORMATION
  Report Type: Spontaneous
  Country: CN (occurrence: CN)
  Receive Date: 20150918
  Receipt Date: 20151119
  Transmission Date: 20160304
  Serious: Yes (Death, Other)
  Sender: FDA-Public Use
  Company Number: CN-PFIZER INC-2015299264

PATIENT
  Age: 51 Year
  Sex: Male

DRUGS (1)
  1. XALKORI [Suspect]
     Active Substance: CRIZOTINIB
     Indication: LUNG NEOPLASM MALIGNANT
     Dosage: 500 MG, DAILY

REACTIONS (4)
  - Disease progression [Fatal]
  - Lung neoplasm malignant [Fatal]
  - Vision blurred [Unknown]
  - Amaurosis [Unknown]
